FAERS Safety Report 5472845-0 (Version None)
Quarter: 2007Q4

REPORT INFORMATION
  Report Type: 
  Country: None (occurrence: None)
  Receive Date: 20071001
  Receipt Date: 20070918
  Transmission Date: 20080405
  Serious: Yes (Other)
  Sender: FDA-Public Use
  Company Number: A0668669A

PATIENT
  Age: 53 Year
  Sex: Male

DRUGS (2)
  1. AVANDARYL [Suspect]
     Dosage: 4MG TWICE PER DAY
     Route: 048
     Dates: start: 20060801
  2. SYNTHROID [Concomitant]

REACTIONS (2)
  - ECZEMA [None]
  - PSORIASIS [None]
